FAERS Safety Report 24254388 (Version 1)
Quarter: 2024Q3

REPORT INFORMATION
  Report Type: Spontaneous
  Country: US (occurrence: US)
  Receive Date: 20240827
  Receipt Date: 20240827
  Transmission Date: 20241017
  Serious: Yes (Hospitalization, Other)
  Sender: GLAND PHARMA
  Company Number: US-GLANDPHARMA-US-2024GLNLIT00652

PATIENT
  Age: 58 Year
  Sex: Male

DRUGS (2)
  1. MELPHALAN HYDROCHLORIDE [Suspect]
     Active Substance: MELPHALAN\MELPHALAN HYDROCHLORIDE
     Indication: Autologous bone marrow transplantation therapy
     Dosage: 200 MG/M2
     Route: 065
  2. CEFEPIME [Concomitant]
     Active Substance: CEFEPIME HYDROCHLORIDE
     Indication: Autologous bone marrow transplantation therapy
     Route: 065

REACTIONS (2)
  - Oesophageal stenosis [Recovering/Resolving]
  - Product use in unapproved indication [Unknown]
